FAERS Safety Report 20532210 (Version 1)
Quarter: 2022Q1

REPORT INFORMATION
  Report Type: Spontaneous
  Country: IT (occurrence: IT)
  Receive Date: 20220301
  Receipt Date: 20220301
  Transmission Date: 20220424
  Serious: Yes (Hospitalization)
  Sender: FDA-Public Use
  Company Number: None

PATIENT
  Age: 47 Year
  Sex: Female
  Weight: 60 kg

DRUGS (2)
  1. MENOPUR [Suspect]
     Active Substance: FOLLITROPIN\LUTEINIZING HORMONE
     Indication: Infertility
     Dosage: UNK
     Route: 058
     Dates: start: 20211015, end: 20211024
  2. GONAL-F [Suspect]
     Active Substance: FOLLITROPIN
     Indication: Infertility
     Dosage: 900 IU, 1 TIME DAILY
     Route: 065
     Dates: start: 20211015, end: 20211024

REACTIONS (2)
  - Respiratory failure [Recovered/Resolved]
  - Ovarian hyperstimulation syndrome [Recovered/Resolved]

NARRATIVE: CASE EVENT DATE: 20211025
